FAERS Safety Report 7424365-1 (Version None)
Quarter: 2011Q2

REPORT INFORMATION
  Report Type: 
  Country: None (occurrence: None)
  Receive Date: 20110411
  Receipt Date: 20110331
  Transmission Date: 20111010
  Serious: Yes (Hospitalization)
  Sender: FDA-Public Use
  Company Number: 1000019726

PATIENT
  Age: 42 Year
  Sex: Female

DRUGS (2)
  1. LORAZEPAM [Concomitant]
  2. LEXAPRO [Suspect]
     Indication: ANXIETY
     Dosage: 5 MG (5 MG,1 IN 1 D),ORAL
     Route: 048
     Dates: start: 20101101

REACTIONS (5)
  - CHEST DISCOMFORT [None]
  - BLOOD PRESSURE DECREASED [None]
  - HYPOXIA [None]
  - DYSPNOEA [None]
  - SEROTONIN SYNDROME [None]
